FAERS Safety Report 4679549-2 (Version None)
Quarter: 2005Q2

REPORT INFORMATION
  Report Type: 
  Country: None (occurrence: None)
  Receive Date: 20050602
  Receipt Date: 20040414
  Transmission Date: 20051028
  Serious: Yes (Other)
  Sender: FDA-Public Use
  Company Number: PHBS2004JP05112

PATIENT
  Age: 59 Year
  Sex: Female

DRUGS (2)
  1. STEROIDS NOS [Suspect]
     Dosage: PULSE THERAPY
  2. CYCLOSPORINE [Suspect]
     Indication: INTERSTITIAL LUNG DISEASE
     Route: 048

REACTIONS (3)
  - DEPRESSION [None]
  - RETINAL INFARCTION [None]
  - VISUAL ACUITY REDUCED [None]
